FAERS Safety Report 11766629 (Version 2)
Quarter: 2015Q4

REPORT INFORMATION
  Report Type: Other
  Country: GB (occurrence: GB)
  Receive Date: 20151123
  Receipt Date: 20151215
  Transmission Date: 20160304
  Serious: Yes (Life-Threatening, Hospitalization)
  Sender: FDA-Public Use
  Company Number: GB-CIPLA LTD.-2015GB08691

PATIENT

DRUGS (24)
  1. BISOPROLOL [Concomitant]
     Active Substance: BISOPROLOL
     Dosage: 10 MG, QD
     Route: 065
  2. FUROSEMIDE. [Concomitant]
     Active Substance: FUROSEMIDE
     Dosage: 40 MG, QD, IN THE MORNING
     Route: 065
  3. MAGNESIUM GLYCEROPHOSPHATE [Concomitant]
     Active Substance: MAGNESIUM GLYCEROPHOSPHATE
     Dosage: 4 MMOL, QD
     Route: 065
     Dates: start: 20150824
  4. DEXAMETHASONE. [Concomitant]
     Active Substance: DEXAMETHASONE
     Dosage: 2 MG, QD
     Route: 065
     Dates: start: 20150918
  5. TAMSULOSIN [Concomitant]
     Active Substance: TAMSULOSIN
     Dosage: 400 UNK, QD
     Route: 065
  6. LIDOCAINE. [Concomitant]
     Active Substance: LIDOCAINE
     Dosage: UNK
     Route: 065
     Dates: start: 20150825
  7. MAGNESIUM ASPARTATE [Concomitant]
     Active Substance: MAGNESIUM ASPARTATE
     Dosage: 10 MMOL, BID, TABLETS PRESCRIBED PATIENT USING SACHETS-INCREASED
     Route: 048
  8. DOMPERUIDONE [Concomitant]
     Dosage: UNK,
     Route: 065
  9. SALBUTAMOL [Concomitant]
     Active Substance: ALBUTEROL
     Dosage: 100 UNK, BID, AS NECESSARY, PATIENT DOESN^T REALLY USE IT
     Route: 055
     Dates: start: 20150824
  10. CARBOPLATIN. [Suspect]
     Active Substance: CARBOPLATIN
     Indication: LARGE CELL LUNG CANCER
     Dosage: 400 MG, QD
     Route: 042
     Dates: start: 20150824
  11. DIGOXIN. [Concomitant]
     Active Substance: DIGOXIN
     Dosage: 125 UNK, QD
     Route: 065
  12. OXYBUTYNIN [Concomitant]
     Active Substance: OXYBUTYNIN
     Dosage: 10 MG, QD IN THE MORNING
     Route: 065
  13. ALLOPURINOL. [Concomitant]
     Active Substance: ALLOPURINOL
     Dosage: 100 MG, BID
     Route: 065
  14. ARTIFICIAL SALIVA [Concomitant]
     Dosage: AS DIRECTED
     Route: 065
  15. CIPROFLOXACIN. [Concomitant]
     Active Substance: CIPROFLOXACIN
     Dosage: 500 MG BID FOR 12 DAYS 9-20 OF CYCLE
     Route: 065
     Dates: start: 20150926, end: 20151007
  16. GLICLAZIDE [Concomitant]
     Active Substance: GLICLAZIDE
     Dosage: 40 MG, QD IN THE MORNING
     Route: 065
  17. METFORMIN [Concomitant]
     Active Substance: METFORMIN HYDROCHLORIDE
     Dosage: 1 G, BID
     Route: 065
  18. SAXAGLIPTIN [Concomitant]
     Active Substance: SAXAGLIPTIN
     Dosage: 5 MG, QD
     Route: 065
  19. ENOXAPARIN [Concomitant]
     Active Substance: ENOXAPARIN
     Indication: ATRIAL FIBRILLATION
     Dosage: 1 DF, QD 120MG/0.8ML PRE FILLED SYRINGE
     Route: 058
  20. ADCAL-D3 [Concomitant]
     Active Substance: CALCIUM CARBONATE\CHOLECALCIFEROL
     Dosage: 1 DF, BID
     Route: 065
     Dates: start: 20150824
  21. DEXAMETHASONE. [Concomitant]
     Active Substance: DEXAMETHASONE
     Dosage: 4 MG 3 DAYS POST CHEMO.
     Route: 065
  22. SIMVASTATIN. [Concomitant]
     Active Substance: SIMVASTATIN
     Dosage: 40 MG, QD AT NIGHT
     Route: 065
  23. ETOPOSIDE. [Suspect]
     Active Substance: ETOPOSIDE
     Indication: LARGE CELL LUNG CANCER
     Dosage: 180 MG, ON DAY 1 OF CHEMOTHERAPY, 200MG BD ON DAYS 2-3
     Route: 065
     Dates: start: 20150824
  24. NUTRITIONAL SUPPLEMENT [Concomitant]
     Active Substance: DIETARY SUPPLEMENT
     Dosage: ENSURE PLUS JUICE 1-2 ONCE A DAY WHILST UNABLE TO EAT
     Route: 065
     Dates: start: 20150820

REACTIONS (4)
  - Pancytopenia [Recovering/Resolving]
  - Urosepsis [Unknown]
  - Urinary tract infection [Unknown]
  - Decreased appetite [Unknown]

NARRATIVE: CASE EVENT DATE: 20150930
